FAERS Safety Report 8363701-9 (Version None)
Quarter: 2012Q2

REPORT INFORMATION
  Report Type: 
  Country: None (occurrence: None)
  Receive Date: 20120516
  Receipt Date: 20120516
  Transmission Date: 20120825
  Serious: No
  Sender: FDA-Public Use
  Company Number: US-JNJFOC-20120313127

PATIENT
  Sex: Male
  Weight: 83.46 kg

DRUGS (4)
  1. FENTANYL-100 [Suspect]
     Indication: BACK DISORDER
     Route: 062
     Dates: start: 20120101, end: 20120101
  2. FENTANYL-100 [Suspect]
     Route: 062
     Dates: start: 20120101, end: 20120101
  3. FENTANYL-100 [Suspect]
     Route: 062
     Dates: start: 20120101
  4. FENTANYL-100 [Suspect]
     Dosage: 37.5 + 12.5 UG/HR
     Route: 062
     Dates: start: 20120101, end: 20120101

REACTIONS (4)
  - PAIN [None]
  - WRONG TECHNIQUE IN DRUG USAGE PROCESS [None]
  - PRODUCT QUALITY ISSUE [None]
  - COLD SWEAT [None]
